FAERS Safety Report 19194731 (Version 4)
Quarter: 2022Q1

REPORT INFORMATION
  Report Type: Spontaneous
  Country: US (occurrence: US)
  Receive Date: 20210429
  Receipt Date: 20220331
  Transmission Date: 20220423
  Serious: Yes (Hospitalization, Other)
  Sender: FDA-Public Use
  Company Number: US-GLAXOSMITHKLINE-US2021GSK092881

PATIENT
  Sex: Male
  Weight: 86 kg

DRUGS (4)
  1. RANITIDINE HYDROCHLORIDE [Suspect]
     Active Substance: RANITIDINE HYDROCHLORIDE
     Indication: Product used for unknown indication
     Dosage: UNK
     Route: 065
  2. ZANTAC [Suspect]
     Active Substance: RANITIDINE HYDROCHLORIDE
     Indication: Dyspepsia
     Dosage: 150 MG, WE
     Route: 065
     Dates: start: 200909, end: 201906
  3. RANITIDINE [Suspect]
     Active Substance: RANITIDINE
     Indication: Dyspepsia
     Dosage: 150 MG, WE
     Route: 065
     Dates: start: 200909, end: 201906
  4. RANITIDINE [Suspect]
     Active Substance: RANITIDINE
     Indication: Dyspepsia
     Dosage: 150 MG, WE
     Route: 065
     Dates: start: 200909, end: 201906

REACTIONS (11)
  - Bladder cancer [Unknown]
  - Haematuria [Unknown]
  - Neoplasm malignant [Unknown]
  - Transitional cell carcinoma [Unknown]
  - Nephrolithiasis [Unknown]
  - Bladder neoplasm [Unknown]
  - Bladder mass [Unknown]
  - Benign neoplasm of bladder [Unknown]
  - Urine abnormality [Unknown]
  - Bladder injury [Unknown]
  - Bladder pain [Unknown]
